FAERS Safety Report 16431098 (Version 2)
Quarter: 2019Q2

REPORT INFORMATION
  Report Type: Spontaneous
  Country: US (occurrence: US)
  Receive Date: 20190614
  Receipt Date: 20190624
  Transmission Date: 20190711
  Serious: No
  Sender: FDA-Public Use
  Company Number: US-PFIZER INC-2019249464

PATIENT
  Sex: Male

DRUGS (3)
  1. NEURONTIN [Suspect]
     Active Substance: GABAPENTIN
     Indication: SEIZURE
     Dosage: UNK
     Dates: end: 2019
  2. NEURONTIN [Suspect]
     Active Substance: GABAPENTIN
     Indication: HEADACHE
  3. NEURONTIN [Suspect]
     Active Substance: GABAPENTIN
     Indication: EPILEPSY

REACTIONS (4)
  - Gastric disorder [Recovering/Resolving]
  - Dysphagia [Recovering/Resolving]
  - Dyspepsia [Recovering/Resolving]
  - Oropharyngeal discomfort [Recovering/Resolving]
